FAERS Safety Report 15256808 (Version 1)
Quarter: 2018Q3

REPORT INFORMATION
  Report Type: Report from Study
  Country: US (occurrence: US)
  Receive Date: 20180808
  Receipt Date: 20180808
  Transmission Date: 20181010
  Serious: Yes (Other)
  Sender: FDA-Public Use
  Company Number: PHEH2018US031715

PATIENT
  Sex: Male
  Weight: 32 kg

DRUGS (1)
  1. OMNITROPE [Suspect]
     Active Substance: SOMATROPIN
     Indication: GROWTH HORMONE DEFICIENCY
     Dosage: 1 MG, QD
     Route: 058
     Dates: start: 20170526

REACTIONS (15)
  - Gait disturbance [Unknown]
  - Dyspnoea [Recovered/Resolved]
  - Headache [Unknown]
  - Respiratory disorder [Unknown]
  - Phimosis [Unknown]
  - Cyst [Unknown]
  - Asthma [Recovering/Resolving]
  - Dry skin [Unknown]
  - Pain [Unknown]
  - Goitre [Unknown]
  - Constipation [Recovered/Resolved]
  - Vitamin D decreased [Unknown]
  - Arthralgia [Unknown]
  - Eczema [Unknown]
  - Tachycardia [Unknown]
